FAERS Safety Report 14066765 (Version 3)
Quarter: 2017Q4

REPORT INFORMATION
  Report Type: Spontaneous
  Country: US (occurrence: US)
  Receive Date: 20171009
  Receipt Date: 20171215
  Transmission Date: 20180321
  Serious: Yes (Hospitalization, Other)
  Sender: FDA-Public Use
  Company Number: US-009507513-1710USA000090

PATIENT
  Age: 73 Year
  Sex: Female
  Weight: 59.41 kg

DRUGS (6)
  1. XALATAN [Concomitant]
     Active Substance: LATANOPROST
     Indication: GLAUCOMA
     Dosage: ONE DROP IN EACH EYE AT BEDTIME
     Route: 047
  2. LABETALOL [Suspect]
     Active Substance: LABETALOL\LABETALOL HYDROCHLORIDE
     Indication: HYPERTENSION
     Dosage: 100 MG, QD
     Route: 048
     Dates: start: 2016
  3. COZAAR [Suspect]
     Active Substance: LOSARTAN POTASSIUM
     Indication: HYPERTENSION
     Dosage: 50 MG, QD
     Route: 048
     Dates: start: 20160804, end: 20161015
  4. NORVASC [Suspect]
     Active Substance: AMLODIPINE BESYLATE
     Indication: BLOOD PRESSURE INCREASED
     Dosage: 10 MG, QAM
     Route: 048
     Dates: start: 20150610, end: 20160610
  5. COZAAR [Suspect]
     Active Substance: LOSARTAN POTASSIUM
     Indication: BLOOD PRESSURE INCREASED
     Dosage: 100 MG, QAM
     Route: 048
     Dates: start: 20160901
  6. PRINIVIL [Suspect]
     Active Substance: LISINOPRIL
     Indication: BLOOD PRESSURE INCREASED
     Dosage: 10 MG, QAM
     Route: 048
     Dates: start: 20160610, end: 20160901

REACTIONS (15)
  - Mitral valve incompetence [Unknown]
  - Viral infection [Unknown]
  - Bundle branch block left [Unknown]
  - Postural orthostatic tachycardia syndrome [Unknown]
  - Anxiety [Unknown]
  - Peripheral swelling [Recovered/Resolved]
  - Joint swelling [Recovered/Resolved]
  - Thrombocytopenia [Unknown]
  - Tachycardia [Recovered/Resolved]
  - Blood thyroid stimulating hormone increased [Unknown]
  - Arthropod bite [Unknown]
  - Neutropenia [Unknown]
  - Cough [Recovered/Resolved]
  - Rash [Unknown]
  - Heart rate increased [Unknown]

NARRATIVE: CASE EVENT DATE: 2016
